FAERS Safety Report 17922667 (Version 4)
Quarter: 2020Q3

REPORT INFORMATION
  Report Type: Other
  Country: JP (occurrence: JP)
  Receive Date: 20200622
  Receipt Date: 20200826
  Transmission Date: 20201103
  Serious: Yes (Hospitalization, Disabling, Other)
  Sender: FDA-Public Use
  Company Number: JP-ROCHE-2625533

PATIENT
  Age: 46 Year

DRUGS (18)
  1. PACLITAXEL. [Suspect]
     Active Substance: PACLITAXEL
     Indication: NON-SMALL CELL LUNG CANCER
     Route: 041
     Dates: start: 20200528
  2. SYMPROIC [Concomitant]
     Active Substance: NALDEMEDINE
     Indication: PROPHYLAXIS
     Route: 048
     Dates: start: 20200529
  3. BEVACIZUMAB. [Suspect]
     Active Substance: BEVACIZUMAB
     Indication: NON-SMALL CELL LUNG CANCER
     Route: 041
  4. OLMESARTAN [Concomitant]
     Active Substance: OLMESARTAN
     Indication: HYPERTENSION
     Dosage: DOSE INTERVAL UNCERTAINTY
     Route: 048
  5. DENOTAS [Concomitant]
     Active Substance: CALCIUM CARBONATE\CHOLECALCIFEROL\MAGNESIUM CARBONATE
     Indication: PROPHYLAXIS
     Dosage: DOSE INTERVAL UNCERTAINTY
     Route: 048
  6. AMLODIPINE [Concomitant]
     Active Substance: AMLODIPINE BESYLATE
     Indication: HYPERTENSION
     Dosage: DOSE INTERVAL UNCERTAINTY
     Route: 048
  7. LOXOPROFEN [Concomitant]
     Active Substance: LOXOPROFEN
     Indication: BACK PAIN
     Route: 048
     Dates: start: 20200529
  8. CALONAL [Suspect]
     Active Substance: ACETAMINOPHEN
     Indication: BACK PAIN
     Dosage: DOSE INTERVAL UNCERTAINTY
     Route: 048
     Dates: start: 20200529, end: 20200604
  9. MEDICON [DEXTROMETHORPHAN HYDROBROMIDE] [Concomitant]
     Active Substance: DEXTROMETHORPHAN HYDROBROMIDE
     Indication: NON-SMALL CELL LUNG CANCER
     Route: 048
  10. EMEND [Concomitant]
     Active Substance: APREPITANT
     Indication: PROPHYLAXIS
     Route: 048
     Dates: start: 20200529, end: 20200530
  11. ATEZOLIZUMAB. [Suspect]
     Active Substance: ATEZOLIZUMAB
     Indication: NON-SMALL CELL LUNG CANCER
     Route: 041
     Dates: start: 20200528
  12. METOCLOPRAMIDE. [Concomitant]
     Active Substance: METOCLOPRAMIDE
     Indication: PROPHYLAXIS
     Dosage: AT THE HICCUP
     Route: 048
     Dates: start: 20200529
  13. MAGMITT [Concomitant]
     Active Substance: MAGNESIUM OXIDE
     Indication: PROPHYLAXIS
     Dosage: AT THE OBSTIPATION
     Route: 048
     Dates: start: 20200529
  14. SENNA [Concomitant]
     Active Substance: SENNA LEAF\SENNOSIDES\SENNOSIDES A AND B
     Indication: PROPHYLAXIS
     Dosage: AT THE OBSTIPATION
     Route: 048
     Dates: start: 20200529
  15. CARBOPLATIN. [Suspect]
     Active Substance: CARBOPLATIN
     Indication: NON-SMALL CELL LUNG CANCER
     Route: 041
     Dates: start: 20200528
  16. LANSOPRAZOLE. [Concomitant]
     Active Substance: LANSOPRAZOLE
     Indication: PROPHYLAXIS
     Dosage: DOSE INTERVAL UNCERTAINTY
     Route: 048
  17. NARUSUS [Concomitant]
     Active Substance: HYDROMORPHONE HYDROCHLORIDE
     Indication: BACK PAIN
     Dosage: DOSE INTERVAL UNCERTAINTY
     Route: 048
  18. DECADRON [Concomitant]
     Active Substance: DEXAMETHASONE
     Indication: PROPHYLAXIS
     Route: 048
     Dates: start: 20200529, end: 20200531

REACTIONS (7)
  - Peripheral motor neuropathy [Unknown]
  - Drug-induced liver injury [Recovering/Resolving]
  - Pyrexia [Recovered/Resolved]
  - Oral candidiasis [Unknown]
  - Bladder disorder [Unknown]
  - Meningitis [Recovered/Resolved with Sequelae]
  - Anorectal disorder [Unknown]

NARRATIVE: CASE EVENT DATE: 202006
